FAERS Safety Report 18216774 (Version 2)
Quarter: 2020Q4

REPORT INFORMATION
  Report Type: Report from Study
  Country: BE (occurrence: BE)
  Receive Date: 20200901
  Receipt Date: 20201014
  Transmission Date: 20210113
  Serious: Yes (Other)
  Sender: FDA-Public Use
  Company Number: BE-BEH-2020121776

PATIENT
  Sex: Male

DRUGS (1)
  1. HIZENTRA [Suspect]
     Active Substance: HUMAN IMMUNOGLOBULIN G
     Indication: PRODUCT USED FOR UNKNOWN INDICATION
     Dosage: 8 GRAM (40 MILLILITER), QW
     Route: 058
     Dates: start: 20170223

REACTIONS (3)
  - Skin necrosis [Unknown]
  - Administration site haematoma [Unknown]
  - Platelet count decreased [Unknown]
